FAERS Safety Report 11302805 (Version 1)
Quarter: 2015Q3

REPORT INFORMATION
  Report Type: Spontaneous
  Country: US (occurrence: US)
  Receive Date: 20150723
  Receipt Date: 20150723
  Transmission Date: 20151125
  Serious: No
  Sender: FDA-Public Use
  Company Number: US-ELI_LILLY_AND_COMPANY-US201507004833

PATIENT
  Sex: Male

DRUGS (5)
  1. HUMALOG [Suspect]
     Active Substance: INSULIN LISPRO
     Dosage: 8 U, QD AT NIGHT
     Route: 065
     Dates: start: 201401
  2. NOVOLIN R [Concomitant]
     Active Substance: INSULIN HUMAN
  3. NOVOLIN N [Concomitant]
     Active Substance: INSULIN HUMAN
  4. HUMALOG [Suspect]
     Active Substance: INSULIN LISPRO
     Dosage: 55 U, EACH EVENING
     Route: 065
     Dates: start: 201401
  5. HUMALOG [Suspect]
     Active Substance: INSULIN LISPRO
     Indication: TYPE 1 DIABETES MELLITUS
     Dosage: 20 U, EACH MORNING
     Route: 065
     Dates: start: 201401

REACTIONS (1)
  - Blood glucose increased [Unknown]
